FAERS Safety Report 26135474 (Version 1)
Quarter: 2025Q4

REPORT INFORMATION
  Report Type: Spontaneous
  Country: US (occurrence: US)
  Receive Date: 20251209
  Receipt Date: 20251209
  Transmission Date: 20260118
  Serious: No
  Sender: NOVEN
  Company Number: US-NOVEN PHARMACEUTICALS, INC.-2025-NOV-US001559

PATIENT
  Sex: Female
  Weight: 54.422 kg

DRUGS (1)
  1. ESTRADIOL [Suspect]
     Active Substance: ESTRADIOL
     Indication: Menopausal symptoms
     Dosage: 0.05 MG, EVERY 3-4 DAYS
     Route: 062
     Dates: start: 2025, end: 2025

REACTIONS (4)
  - Product ineffective [Recovered/Resolved]
  - Product administration error [Recovered/Resolved]
  - Product adhesion issue [Recovered/Resolved]
  - Product physical issue [Recovered/Resolved]

NARRATIVE: CASE EVENT DATE: 20250101
